FAERS Safety Report 14532994 (Version 5)
Quarter: 2018Q2

REPORT INFORMATION
  Report Type: Spontaneous
  Country: RU (occurrence: RU)
  Receive Date: 20180215
  Receipt Date: 20180629
  Transmission Date: 20180711
  Serious: Yes (Hospitalization, Other)
  Sender: FDA-Public Use
  Company Number: RU-ASTRAZENECA-2018SE18040

PATIENT
  Age: 70 Year
  Sex: Female
  Weight: 47 kg

DRUGS (13)
  1. BISOPROLOL [Concomitant]
     Active Substance: BISOPROLOL
  2. GALVUS [Concomitant]
     Active Substance: VILDAGLIPTIN
  3. CARDIOMAGNYL [Concomitant]
     Active Substance: ASPIRIN\MAGNESIUM HYDROXIDE
  4. OMEPRAZOLE. [Concomitant]
     Active Substance: OMEPRAZOLE
  5. BRILINTA [Suspect]
     Active Substance: TICAGRELOR
     Indication: MYOCARDIAL INFARCTION
     Dosage: 90 MG DAILY
     Route: 048
     Dates: start: 201803
  6. NOLICIN [Concomitant]
  7. BRILINTA [Suspect]
     Active Substance: TICAGRELOR
     Indication: MYOCARDIAL INFARCTION
     Route: 048
     Dates: start: 201803
  8. THROMBO ASS [Concomitant]
     Active Substance: ASPIRIN
  9. NOVONORM [Concomitant]
     Active Substance: REPAGLINIDE
  10. PRESTARIUM [Concomitant]
     Active Substance: PERINDOPRIL
  11. TORVACARD [Concomitant]
     Active Substance: ATORVASTATIN CALCIUM
  12. BRILINTA [Suspect]
     Active Substance: TICAGRELOR
     Indication: MYOCARDIAL INFARCTION
     Route: 048
     Dates: start: 20161116, end: 201802
  13. BRILINTA [Suspect]
     Active Substance: TICAGRELOR
     Indication: MYOCARDIAL INFARCTION
     Dosage: 90 MG HALF A TABLET TWICE A DAY
     Route: 048
     Dates: start: 201805

REACTIONS (14)
  - Blood pressure increased [Unknown]
  - Nasopharyngitis [Recovered/Resolved]
  - Blood glucose decreased [Recovered/Resolved]
  - Pharyngeal haemorrhage [Unknown]
  - Cystitis [Recovered/Resolved]
  - Product use issue [Not Recovered/Not Resolved]
  - Myocardial infarction [Recovered/Resolved with Sequelae]
  - Decreased appetite [Not Recovered/Not Resolved]
  - Malaise [Recovered/Resolved]
  - Contusion [Not Recovered/Not Resolved]
  - Haemorrhage [Recovered/Resolved]
  - Intentional product misuse [Not Recovered/Not Resolved]
  - Spinal pain [Not Recovered/Not Resolved]
  - Off label use [Not Recovered/Not Resolved]

NARRATIVE: CASE EVENT DATE: 201611
